FAERS Safety Report 13014622 (Version 3)
Quarter: 2016Q4

REPORT INFORMATION
  Report Type: Spontaneous
  Country: JP (occurrence: JP)
  Receive Date: 20161209
  Receipt Date: 20161214
  Transmission Date: 20170207
  Serious: Yes (Death, Hospitalization)
  Sender: FDA-Public Use
  Company Number: JP-B.I. PHARMACEUTICALS,INC./RIDGEFIELD-2016-NB-001333

PATIENT
  Age: 82 Year
  Sex: Male

DRUGS (1)
  1. PRAZAXA [Suspect]
     Active Substance: DABIGATRAN ETEXILATE MESYLATE
     Indication: ATRIAL FIBRILLATION
     Route: 048
     Dates: end: 20161129

REACTIONS (5)
  - Shock [Fatal]
  - Disseminated intravascular coagulation [Fatal]
  - Decreased appetite [Fatal]
  - Asthenia [Fatal]
  - Ventricular fibrillation [Fatal]

NARRATIVE: CASE EVENT DATE: 20161128
